FAERS Safety Report 8125686-X (Version None)
Quarter: 2012Q1

REPORT INFORMATION
  Report Type: 
  Country: None (occurrence: None)
  Receive Date: 20120209
  Receipt Date: 20120131
  Transmission Date: 20120608
  Serious: Yes (Death, Hospitalization)
  Sender: FDA-Public Use
  Company Number: JP-TEVA-2011002089

PATIENT
  Sex: Male

DRUGS (27)
  1. BENDAMUSTINE [Suspect]
     Route: 042
     Dates: start: 20110428, end: 20110429
  2. DEXAMETHASONE SODIUM PHOSPHATE [Concomitant]
     Dates: start: 20101227, end: 20110429
  3. BENDAMUSTINE [Suspect]
     Indication: MANTLE CELL LYMPHOMA
     Route: 042
     Dates: start: 20101227, end: 20101228
  4. BROTIZOLAM [Concomitant]
  5. ACYCLOVIR [Concomitant]
     Dates: start: 20101227, end: 20110211
  6. TRANEXAMIC ACID [Concomitant]
     Dates: start: 20110107, end: 20110130
  7. BENDAMUSTINE [Suspect]
     Route: 042
     Dates: start: 20110525, end: 20110526
  8. BENDAMUSTINE [Suspect]
     Route: 042
     Dates: start: 20110621, end: 20110622
  9. OXYCODONE HCL [Concomitant]
     Dates: start: 20100124, end: 20100510
  10. BROTIZOLAM [Concomitant]
  11. BENDAMUSTINE [Suspect]
     Route: 042
     Dates: start: 20110719, end: 20110720
  12. DICLOFENAC SODIUM [Concomitant]
  13. FAROPENEM SODIUM HYDRATE [Concomitant]
     Dates: start: 20101229, end: 20110104
  14. DORIPENEM HYDRATE [Concomitant]
     Dates: start: 20110117, end: 20110121
  15. GRANISETRON HYDROCHLORIDE [Concomitant]
     Dates: start: 20110428, end: 20110429
  16. GRANISETRON HYDROCHLORIDE [Concomitant]
     Dates: start: 20110119, end: 20110120
  17. LENOGRASTIM [Concomitant]
     Dates: start: 20101229, end: 20101231
  18. BENDAMUSTINE [Suspect]
     Route: 042
     Dates: start: 20110119, end: 20110120
  19. ACYCLOVIR [Concomitant]
     Dates: start: 20110129, end: 20110211
  20. PREGABALIN [Concomitant]
     Dates: start: 20110121
  21. DEXAMETHASONE [Concomitant]
     Dates: start: 20110317
  22. OXYCODONE HCL [Concomitant]
     Dates: start: 20100511, end: 20110213
  23. OXYCODONE HCL [Concomitant]
     Dates: start: 20110213
  24. SULFAMETHOXAZOLE AND TRIMETHOPRIM [Concomitant]
  25. DORIPENEM HYDRATE [Concomitant]
     Dates: start: 20101230, end: 20101230
  26. GRANISETRON HYDROCHLORIDE [Concomitant]
     Dates: start: 20101227, end: 20110429
  27. LENOGRASTIM [Concomitant]
     Dates: start: 20101229, end: 20101231

REACTIONS (4)
  - PLEURISY [None]
  - STAPHYLOCOCCAL SEPSIS [None]
  - FUNGAEMIA [None]
  - MANTLE CELL LYMPHOMA [None]
